FAERS Safety Report 20647598 (Version 1)
Quarter: 2022Q1

REPORT INFORMATION
  Report Type: Spontaneous
  Country: US (occurrence: None)
  Receive Date: 20220328
  Receipt Date: 20220328
  Transmission Date: 20220423
  Serious: Yes (Hospitalization)
  Sender: FDA-Public Use
  Company Number: None

PATIENT
  Age: 62 Year
  Sex: Female
  Weight: 72.7 kg

DRUGS (1)
  1. SOTROVIMAB [Suspect]
     Active Substance: SOTROVIMAB
     Indication: SARS-CoV-2 test positive
     Route: 042
     Dates: start: 20220325, end: 20220325

REACTIONS (12)
  - Nausea [None]
  - Dizziness [None]
  - Malaise [None]
  - Vomiting [None]
  - Tremor [None]
  - Chills [None]
  - Confusional state [None]
  - Lethargy [None]
  - Tachycardia [None]
  - Heart rate decreased [None]
  - Blood pressure decreased [None]
  - Infusion related reaction [None]

NARRATIVE: CASE EVENT DATE: 20220325
